FAERS Safety Report 8618916-9 (Version None)
Quarter: 2012Q3

REPORT INFORMATION
  Report Type: 
  Country: None (occurrence: None)
  Receive Date: 20120824
  Receipt Date: 20120815
  Transmission Date: 20120928
  Serious: Yes (Hospitalization)
  Sender: FDA-Public Use
  Company Number: CH-PFIZER INC-2012206052

PATIENT
  Age: 84 Year
  Sex: Male

DRUGS (7)
  1. RAMIPRIL [Suspect]
     Indication: ESSENTIAL HYPERTENSION
     Dosage: 1.25 MG, DAILY
     Route: 048
  2. VI-DE 3 [Concomitant]
     Dosage: UNK
  3. MARCUMAR [Concomitant]
     Dosage: UNK
  4. GALANTAMINE HYDROBROMIDE [Interacting]
     Indication: COGNITIVE DISORDER
     Dosage: 16 MG, DAILY
     Route: 048
     Dates: start: 20110101
  5. SIMVASTATIN [Concomitant]
     Dosage: UNK
  6. CALCIMAGON-D3 [Concomitant]
     Dosage: UNK
  7. BISOPROLOL FUMARATE [Interacting]
     Indication: ESSENTIAL HYPERTENSION
     Dosage: 1.25 MG, DAILY
     Route: 048
     Dates: start: 20120608, end: 20120601

REACTIONS (4)
  - DRUG INTERACTION [None]
  - SICK SINUS SYNDROME [None]
  - ATRIOVENTRICULAR BLOCK SECOND DEGREE [None]
  - SINUS BRADYCARDIA [None]
